FAERS Safety Report 11737310 (Version 1)
Quarter: 2015Q4

REPORT INFORMATION
  Report Type: Report from Study
  Country: JP (occurrence: JP)
  Receive Date: 20151113
  Receipt Date: 20151113
  Transmission Date: 20160304
  Serious: Yes (Death, Other)
  Sender: FDA-Public Use
  Company Number: JP-GLAXOSMITHKLINE-JP2015JPN160341

PATIENT
  Age: 17 Year
  Sex: Male
  Weight: 23 kg

DRUGS (27)
  1. LAMOTRIGINE. [Suspect]
     Active Substance: LAMOTRIGINE
     Dosage: 7.5 MG, BID
     Route: 048
     Dates: start: 20100907
  2. CLOBAZAM [Concomitant]
     Active Substance: CLOBAZAM
     Indication: EPILEPSY
     Dosage: 5 MG, 1D
     Dates: start: 20001207, end: 20020329
  3. LAMOTRIGINE. [Suspect]
     Active Substance: LAMOTRIGINE
     Dosage: 100 MG, BID
     Route: 048
     Dates: start: 20110509
  4. LAMOTRIGINE. [Suspect]
     Active Substance: LAMOTRIGINE
     Dosage: 112.5 MG, BID
     Route: 048
     Dates: start: 20110606
  5. ZONISAMIDE. [Concomitant]
     Active Substance: ZONISAMIDE
     Indication: EPILEPSY
     Dosage: 150 MG, 1D
     Dates: start: 20000207, end: 20060725
  6. LAMOTRIGINE. [Suspect]
     Active Substance: LAMOTRIGINE
     Dosage: 40 MG, BID
     Route: 048
     Dates: start: 20101202
  7. LAMOTRIGINE. [Suspect]
     Active Substance: LAMOTRIGINE
     Dosage: 60 MG, BID
     Route: 048
     Dates: start: 20110201
  8. LAMOTRIGINE. [Suspect]
     Active Substance: LAMOTRIGINE
     Dosage: 87.5 MG, BID
     Route: 048
     Dates: start: 20110401
  9. GASTER [Concomitant]
     Active Substance: FAMOTIDINE
  10. GABAPENTIN. [Concomitant]
     Active Substance: GABAPENTIN
     Indication: EPILEPSY
     Dosage: 400 MG, 1D
     Dates: start: 20071122, end: 20080125
  11. CLARITH [Concomitant]
     Active Substance: CLARITHROMYCIN
     Indication: PROPHYLAXIS
  12. MUCODYNE [Concomitant]
     Active Substance: CARBOCYSTEINE
  13. HOKUNALIN [Concomitant]
     Active Substance: TULOBUTEROL
  14. PHENYTOIN. [Concomitant]
     Active Substance: PHENYTOIN
     Indication: EPILEPSY
     Dosage: 140 MG, 1D
     Dates: start: 19990218
  15. LAMOTRIGINE. [Suspect]
     Active Substance: LAMOTRIGINE
     Indication: EPILEPSY
     Dosage: 5 MG, QD
     Route: 048
     Dates: start: 20100809
  16. LAMOTRIGINE. [Suspect]
     Active Substance: LAMOTRIGINE
     Dosage: 50 MG, BID
     Route: 048
     Dates: start: 20110104
  17. PHENOBARBITAL. [Concomitant]
     Active Substance: PHENOBARBITAL
     Indication: EPILEPSY
     Dosage: 115 MG, 1D
     Dates: start: 19950913
  18. CLONAZEPAM. [Concomitant]
     Active Substance: CLONAZEPAM
     Indication: EPILEPSY
     Dosage: UNK
     Dates: start: 19941030, end: 20010501
  19. TOPIRAMATE. [Concomitant]
     Active Substance: TOPIRAMATE
     Indication: EPILEPSY
     Dosage: 200 MG, 1D
     Dates: start: 20080303, end: 20100713
  20. LAMOTRIGINE. [Suspect]
     Active Substance: LAMOTRIGINE
     Dosage: 15 MG, BID
     Route: 048
     Dates: start: 20101005
  21. LAMOTRIGINE. [Suspect]
     Active Substance: LAMOTRIGINE
     Dosage: 25 MG, BID
     Route: 048
     Dates: start: 20101105
  22. LAMOTRIGINE. [Suspect]
     Active Substance: LAMOTRIGINE
     Dosage: 75 MG, BID
     Route: 048
     Dates: start: 20110301
  23. BACLOFEN. [Concomitant]
     Active Substance: BACLOFEN
  24. ONEALFA [Concomitant]
     Active Substance: ALFACALCIDOL
     Indication: PROPHYLAXIS
  25. CARBAMAZEPINE. [Concomitant]
     Active Substance: CARBAMAZEPINE
     Indication: EPILEPSY
     Dosage: UNK
     Dates: start: 19950913, end: 20030424
  26. LAMOTRIGINE. [Suspect]
     Active Substance: LAMOTRIGINE
     Dosage: 125 MG, BID
     Route: 048
     Dates: start: 20110705, end: 201109
  27. MUCOSOLVAN [Concomitant]
     Active Substance: AMBROXOL HYDROCHLORIDE

REACTIONS (1)
  - Respiratory failure [Fatal]

NARRATIVE: CASE EVENT DATE: 201109
